FAERS Safety Report 22611119 (Version 1)
Quarter: 2023Q2

REPORT INFORMATION
  Report Type: Spontaneous
  Country: US (occurrence: US)
  Receive Date: 20230616
  Receipt Date: 20230616
  Transmission Date: 20230721
  Serious: No
  Sender: FDA-Public Use
  Company Number: US-PFIZER INC-202300219379

PATIENT
  Age: 75 Year
  Sex: Female
  Weight: 77.098 kg

DRUGS (2)
  1. PAXLOVID [Suspect]
     Active Substance: NIRMATRELVIR\RITONAVIR
     Indication: COVID-19
     Dosage: SIX TIMES A DAY, THREE PILLS TWICE A DAY OR SIX PILLS A DAY
     Route: 048
     Dates: start: 20230607, end: 20230611
  2. TYLENOL [Suspect]
     Active Substance: ACETAMINOPHEN
     Indication: Arthritis
     Dosage: 650 MG, 1X/DAY
     Route: 048

REACTIONS (5)
  - Abdominal discomfort [Recovering/Resolving]
  - Product use complaint [Unknown]
  - Intentional product misuse [Unknown]
  - Off label use [Unknown]
  - Incorrect product administration duration [Unknown]
